FAERS Safety Report 5717149-3 (Version None)
Quarter: 2008Q2

REPORT INFORMATION
  Report Type: 
  Country: None (occurrence: None)
  Receive Date: 20080423
  Receipt Date: 20080408
  Transmission Date: 20081010
  Serious: Yes (Hospitalization, Other)
  Sender: FDA-Public Use
  Company Number: 2008S1005785

PATIENT
  Age: 77 Year
  Sex: Male

DRUGS (4)
  1. PROPRANOLOL [Suspect]
     Indication: HYPERTENSION
  2. DILTIAZEM [Suspect]
     Indication: HYPERTENSION
  3. TIMOLOL MALEATE [Concomitant]
  4. XALATAN [Concomitant]

REACTIONS (14)
  - ATRIOVENTRICULAR BLOCK [None]
  - BLOOD CHLORIDE DECREASED [None]
  - BLOOD CREATINE INCREASED [None]
  - BLOOD GLUCOSE INCREASED [None]
  - BLOOD POTASSIUM INCREASED [None]
  - BLOOD PRESSURE DECREASED [None]
  - BLOOD SODIUM DECREASED [None]
  - BLOOD UREA INCREASED [None]
  - DIZZINESS [None]
  - HYPERKALAEMIA [None]
  - METABOLIC ACIDOSIS [None]
  - NODAL RHYTHM [None]
  - OBSTRUCTIVE UROPATHY [None]
  - SINUS BRADYCARDIA [None]
